FAERS Safety Report 13282156 (Version 1)
Quarter: 2017Q1

REPORT INFORMATION
  Report Type: Spontaneous
  Country: US (occurrence: US)
  Receive Date: 20170301
  Receipt Date: 20170301
  Transmission Date: 20170428
  Serious: Yes (Hospitalization)
  Sender: FDA-Public Use
  Company Number: None

PATIENT
  Age: 68 Year
  Sex: Female

DRUGS (2)
  1. MORPHINE IR 2 MG [Suspect]
     Active Substance: MORPHINE
  2. HYDROMORPHONE 1 MG [Suspect]
     Active Substance: HYDROMORPHONE

REACTIONS (8)
  - Grip strength decreased [None]
  - Hypopnoea [None]
  - Oxygen saturation decreased [None]
  - Heart rate increased [None]
  - Blood pressure systolic increased [None]
  - Respiratory rate increased [None]
  - Unresponsive to stimuli [None]
  - Body temperature increased [None]

NARRATIVE: CASE EVENT DATE: 20150819
